FAERS Safety Report 9677850 (Version 3)
Quarter: 2014Q1

REPORT INFORMATION
  Report Type: Report from Study
  Country: ZA (occurrence: ZA)
  Receive Date: 20131108
  Receipt Date: 20140204
  Transmission Date: 20141002
  Serious: Yes (Death, Hospitalization)
  Sender: FDA-Public Use
  Company Number: ZA-ROCHE-1207028

PATIENT
  Age: 40 Year
  Sex: Female

DRUGS (5)
  1. RECORMON [Suspect]
     Indication: NEPHROGENIC ANAEMIA
     Route: 058
  2. RECORMON [Suspect]
     Route: 058
     Dates: start: 20111124
  3. RECORMON [Suspect]
     Route: 058
     Dates: start: 20120904, end: 20130829
  4. MIRCERA [Suspect]
     Indication: NEPHROGENIC ANAEMIA
     Dosage: LAST DOSE PRIOR TO SAE: 27-NOV-2013
     Route: 058
     Dates: start: 20130829
  5. WARFARIN [Concomitant]

REACTIONS (3)
  - Disease progression [Fatal]
  - Peritonitis [Unknown]
  - Peritonitis [Unknown]
